FAERS Safety Report 11135950 (Version 1)
Quarter: 2015Q2

REPORT INFORMATION
  Report Type: Spontaneous
  Country: US (occurrence: US)
  Receive Date: 20150526
  Receipt Date: 20150526
  Transmission Date: 20150821
  Serious: No
  Sender: FDA-Public Use
  Company Number: US-MALLINCKRODT-T201501840

PATIENT
  Sex: Female

DRUGS (1)
  1. H.P. ACTHAR [Suspect]
     Active Substance: CORTICOTROPIN
     Indication: POLYMYOSITIS
     Dosage: 80 U, ONCE WEEKLY
     Route: 065
     Dates: start: 20150211

REACTIONS (3)
  - Sluggishness [Unknown]
  - Musculoskeletal stiffness [Unknown]
  - Pain [Unknown]
